FAERS Safety Report 15700271 (Version 2)
Quarter: 2018Q4

REPORT INFORMATION
  Report Type: Spontaneous
  Country: US (occurrence: US)
  Receive Date: 20181207
  Receipt Date: 20181228
  Transmission Date: 20190205
  Serious: No
  Sender: FDA-Public Use
  Company Number: US-BAUSCH-BL-2018-032637

PATIENT
  Age: 66 Year
  Sex: Female
  Weight: 49.03 kg

DRUGS (3)
  1. NORITATE [Suspect]
     Active Substance: METRONIDAZOLE
     Indication: ROSACEA
     Dosage: HAS BEEN USING NORITATE FOR THE PAST 20 YEARS
     Route: 061
     Dates: start: 1998
  2. NORITATE [Suspect]
     Active Substance: METRONIDAZOLE
     Dosage: DOSE INCREASED
     Route: 061
     Dates: start: 2018
  3. NORITATE [Suspect]
     Active Substance: METRONIDAZOLE
     Dosage: USING WITH NEW LOT PRODUCT, USED TWO TUBES
     Route: 061
     Dates: start: 201810

REACTIONS (4)
  - Product physical consistency issue [Not Recovered/Not Resolved]
  - Rosacea [Not Recovered/Not Resolved]
  - Drug ineffective [Not Recovered/Not Resolved]
  - Product quality issue [Not Recovered/Not Resolved]

NARRATIVE: CASE EVENT DATE: 2018
